FAERS Safety Report 13200329 (Version 1)
Quarter: 2017Q1

REPORT INFORMATION
  Report Type: Spontaneous
  Country: TR (occurrence: TR)
  Receive Date: 20170208
  Receipt Date: 20170208
  Transmission Date: 20170428
  Serious: Yes (Death)
  Sender: FDA-Public Use
  Company Number: PHHY2017TR009855

PATIENT
  Age: 33 Year
  Sex: Female
  Weight: 70 kg

DRUGS (4)
  1. VOLTAREN [Suspect]
     Active Substance: DICLOFENAC SODIUM
     Indication: ARTHRITIS
     Dosage: 75 MG, QD
     Route: 048
     Dates: start: 20170103, end: 20170109
  2. NYZANT [Concomitant]
     Indication: GASTROOESOPHAGEAL REFLUX DISEASE
     Dosage: UNK UNK, QD
     Route: 048
     Dates: start: 20170103, end: 20170109
  3. KOLSIN [Suspect]
     Active Substance: COLCHICINE
     Indication: GOUT
     Dosage: UNK UNK, TID (DRAGEES THREE TIMES A DAY)
     Route: 048
     Dates: start: 20170103, end: 20170109
  4. FUCIDIN [Concomitant]
     Active Substance: FUSIDIC ACID
     Indication: SOFT TISSUE INFECTION
     Dosage: 3 DF, QD
     Route: 048
     Dates: start: 20170103, end: 20170109

REACTIONS (4)
  - Blood urea increased [Fatal]
  - Nausea [Fatal]
  - Vomiting [Fatal]
  - Blood creatine increased [Fatal]

NARRATIVE: CASE EVENT DATE: 20170107
